FAERS Safety Report 9384780 (Version 1)
Quarter: 2013Q3

REPORT INFORMATION
  Report Type: Spontaneous
  Country: DE (occurrence: DE)
  Receive Date: 20130705
  Receipt Date: 20130705
  Transmission Date: 20140515
  Serious: Yes (Death, Congenital Anomaly)
  Sender: FDA-Public Use
  Company Number: DE-AMGEN-DEUSP2013046711

PATIENT
  Sex: 0

DRUGS (1)
  1. ENBREL [Suspect]
     Dosage: 50 MG, WEEKLY
     Route: 064
     Dates: start: 20120610, end: 20120706

REACTIONS (1)
  - Hypoplastic left heart syndrome [Fatal]
